FAERS Safety Report 7745620-1 (Version None)
Quarter: 2011Q3

REPORT INFORMATION
  Report Type: 
  Country: None (occurrence: None)
  Receive Date: 20110908
  Receipt Date: 20110824
  Transmission Date: 20111222
  Serious: Yes (Hospitalization)
  Sender: FDA-Public Use
  Company Number: AUR-APL-2011-04849

PATIENT

DRUGS (12)
  1. ASPIRIN [Concomitant]
  2. RANITIDINE [Concomitant]
  3. SERETIDE (SERETIDE) [Concomitant]
  4. SPIRIVA (TIOTROPIUM BROMDE) [Concomitant]
  5. FUROSEMIDE [Suspect]
     Indication: PRODUCT USED FOR UNKNOWN INDICATION
     Dosage: 20 MG, 1 D), ORAL
     Route: 048
     Dates: start: 20110801
  6. PERINDOPRIL ERBUMINE [Suspect]
     Indication: PRODUCT USED FOR UNKNOWN INDICATION
     Dosage: 8 MG, ORAL
     Route: 048
     Dates: start: 20080101
  7. DALTEPARIN SODIUM [Suspect]
     Indication: LUNG NEOPLASM MALIGNANT
     Dates: start: 20110704
  8. DIGOXIN [Concomitant]
  9. BISOPROLOL FUMARATE [Concomitant]
  10. SIMVASTATIN [Concomitant]
  11. ALLOPURINOL [Concomitant]
  12. DEXAMETHASONE [Concomitant]

REACTIONS (1)
  - CONFUSIONAL STATE [None]
